FAERS Safety Report 7599406-1 (Version None)
Quarter: 2011Q3

REPORT INFORMATION
  Report Type: 
  Country: None (occurrence: None)
  Receive Date: 20110711
  Receipt Date: 20110330
  Transmission Date: 20111222
  Serious: Yes (Hospitalization, Disabling, Other)
  Sender: FDA-Public Use
  Company Number: BR-BAYER-2011-028439

PATIENT
  Age: 42 Year
  Sex: Female

DRUGS (4)
  1. SILICONE PRODUCTS [Concomitant]
     Indication: PRODUCT USED FOR UNKNOWN INDICATION
     Dosage: 40 GTT, TID
     Route: 048
  2. INTERFERON BETA-1B [Suspect]
     Indication: MULTIPLE SCLEROSIS
     Dosage: 1 ML, QOD
     Route: 058
     Dates: end: 20110309
  3. CARBAMAZEPINE [Concomitant]
     Indication: PRODUCT USED FOR UNKNOWN INDICATION
     Dosage: 1 DF, BID
     Route: 048
  4. PHENYTOIN [Concomitant]
     Indication: PRODUCT USED FOR UNKNOWN INDICATION
     Dosage: 1 DF, BID
     Route: 048

REACTIONS (14)
  - CALCIUM DEFICIENCY [None]
  - CONVULSION [None]
  - MOBILITY DECREASED [None]
  - MUSCLE TWITCHING [None]
  - MOTOR DYSFUNCTION [None]
  - DECUBITUS ULCER [None]
  - MULTIPLE SCLEROSIS RELAPSE [None]
  - LOSS OF CONSCIOUSNESS [None]
  - BEDRIDDEN [None]
  - MALAISE [None]
  - EYE DISORDER [None]
  - BLOOD CALCIUM DECREASED [None]
  - UNEVALUABLE EVENT [None]
  - APHASIA [None]
